FAERS Safety Report 9233333 (Version 2)
Quarter: 2013Q2

REPORT INFORMATION
  Report Type: Spontaneous
  Country: US (occurrence: US)
  Receive Date: 20130416
  Receipt Date: 20130515
  Transmission Date: 20140414
  Serious: Yes (Other)
  Sender: FDA-Public Use
  Company Number: US-PFIZER INC-2013116226

PATIENT
  Age: 70 Year
  Sex: Male
  Weight: 100 kg

DRUGS (1)
  1. XELJANZ [Suspect]
     Indication: RHEUMATOID ARTHRITIS
     Dosage: 5 MG, 2X/DAY
     Dates: start: 201301

REACTIONS (2)
  - Cardiac failure congestive [Recovering/Resolving]
  - Hypertension [Recovering/Resolving]
